FAERS Safety Report 5120638-6 (Version None)
Quarter: 2006Q4

REPORT INFORMATION
  Report Type: 
  Country: None (occurrence: None)
  Receive Date: 20061002
  Receipt Date: 20060911
  Transmission Date: 20070319
  Serious: Yes (Hospitalization)
  Sender: FDA-Public Use
  Company Number: BE200609002512

PATIENT
  Age: 64 Year
  Sex: Male

DRUGS (3)
  1. PEMETREXED (PEMETREXED) [Suspect]
     Dosage: 938.8MG, OTHER, INTRAVENOUS
     Route: 042
     Dates: start: 20060717
  2. PEMETREXED (PEMETREXED) [Suspect]
     Dosage: 938.8MG, OTHER, INTRAVENOUS
     Route: 042
     Dates: start: 20060814
  3. RADIATION (RADIATION) [Suspect]
     Dosage: 10 GY
     Dates: start: 20060717

REACTIONS (2)
  - FEBRILE NEUTROPENIA [None]
  - PNEUMONIA [None]
